FAERS Safety Report 20545445 (Version 1)
Quarter: 2022Q1

REPORT INFORMATION
  Report Type: Spontaneous
  Country: DK (occurrence: DK)
  Receive Date: 20220303
  Receipt Date: 20220303
  Transmission Date: 20220423
  Serious: Yes (Death, Life-Threatening, Hospitalization)
  Sender: FDA-Public Use
  Company Number: None

PATIENT
  Age: 67 Year
  Sex: Male

DRUGS (2)
  1. CARBOPLATIN [Suspect]
     Active Substance: CARBOPLATIN
     Indication: Neuroendocrine carcinoma
     Dosage: STRENGTH AND DOSE: UNKNOWN
     Dates: start: 20180514
  2. ETOPOSIDE [Suspect]
     Active Substance: ETOPOSIDE
     Indication: Neuroendocrine carcinoma
     Dosage: STRENGTH AND DOSE: UNKNOWN
     Dates: start: 20180514

REACTIONS (2)
  - Febrile neutropenia [Fatal]
  - Off label use [Unknown]

NARRATIVE: CASE EVENT DATE: 20180522
